FAERS Safety Report 9290236 (Version 1)
Quarter: 2013Q2

REPORT INFORMATION
  Report Type: Spontaneous
  Country: US (occurrence: None)
  Receive Date: 20130514
  Receipt Date: 20130514
  Transmission Date: 20140414
  Serious: No
  Sender: FDA-Public Use
  Company Number: None

PATIENT
  Sex: Male

DRUGS (1)
  1. ZELBORAF [Suspect]
     Indication: NEOPLASM MALIGNANT
     Dosage: 960 ONCE DAILY PO
     Route: 048
     Dates: start: 20130420, end: 20130513

REACTIONS (3)
  - Flushing [None]
  - Diarrhoea [None]
  - Rash [None]
